FAERS Safety Report 9314878 (Version 2)
Quarter: 2013Q4

REPORT INFORMATION
  Report Type: Spontaneous
  Country: GB (occurrence: GB)
  Receive Date: 20130529
  Receipt Date: 20131107
  Transmission Date: 20140711
  Serious: Yes (Life-Threatening, Hospitalization, Disabling, Other)
  Sender: FDA-Public Use
  Company Number: PHHY2013GB053360

PATIENT
  Age: 77 Year
  Sex: Female
  Weight: 61.4 kg

DRUGS (3)
  1. GABAPENTIN [Suspect]
     Indication: ESSENTIAL TREMOR
     Dosage: 100 MG, TID
     Route: 048
     Dates: start: 20121001, end: 20121018
  2. PROPRANOLOL [Concomitant]
     Indication: ESSENTIAL TREMOR
     Dosage: 80 MG, QD
     Route: 048
     Dates: start: 1997, end: 20121129
  3. LEVOCETIRIZINE [Concomitant]
     Indication: PRURITUS
     Dosage: 5 MG, QD
     Route: 048
     Dates: start: 201210, end: 20121129

REACTIONS (2)
  - Cholestasis [Recovered/Resolved]
  - Jaundice [Recovered/Resolved]
